FAERS Safety Report 10156871 (Version 1)
Quarter: 2014Q2

REPORT INFORMATION
  Report Type: Spontaneous
  Country: IT (occurrence: IT)
  Receive Date: 20140507
  Receipt Date: 20140507
  Transmission Date: 20141212
  Serious: Yes (Hospitalization)
  Sender: FDA-Public Use
  Company Number: IT-JNJFOC-20140420055

PATIENT
  Age: 76 Year
  Sex: Male

DRUGS (12)
  1. LEVOFLOXACIN [Suspect]
     Indication: CHEMOTHERAPY
     Route: 048
     Dates: start: 20140210
  2. BORTEZOMIB [Suspect]
     Indication: PLASMA CELL MYELOMA
     Route: 065
     Dates: start: 20140210
  3. BORTEZOMIB [Suspect]
     Indication: PLASMA CELL MYELOMA
     Route: 065
     Dates: start: 20140220
  4. BORTEZOMIB [Suspect]
     Indication: PLASMA CELL MYELOMA
     Route: 065
     Dates: start: 20140313
  5. BORTEZOMIB [Suspect]
     Indication: PLASMA CELL MYELOMA
     Route: 065
     Dates: start: 20140310
  6. BACTRIM [Suspect]
     Indication: CHEMOTHERAPY
     Route: 048
     Dates: start: 20140210
  7. ALKERAN [Suspect]
     Indication: PLASMA CELL MYELOMA
     Route: 048
     Dates: start: 20140212
  8. ACICLOVIR [Suspect]
     Indication: CHEMOTHERAPY
     Route: 048
     Dates: start: 20140210
  9. FILGRASTIM [Suspect]
     Indication: CHEMOTHERAPY
     Route: 058
     Dates: start: 20140217
  10. LASIX [Concomitant]
     Route: 065
  11. CARDIOASPIRIN [Concomitant]
     Route: 065
  12. RAMIPRIL [Concomitant]
     Route: 065

REACTIONS (7)
  - Pruritus [Recovering/Resolving]
  - Adverse reaction [Recovering/Resolving]
  - Erythema [Recovering/Resolving]
  - Rash maculo-papular [Recovering/Resolving]
  - Periorbital oedema [Recovering/Resolving]
  - Rash [Unknown]
  - Off label use [Unknown]
